FAERS Safety Report 6435626-7 (Version None)
Quarter: 2009Q4

REPORT INFORMATION
  Report Type: 
  Country: None (occurrence: None)
  Receive Date: 20091111
  Receipt Date: 20091110
  Transmission Date: 20100525
  Serious: Yes (Hospitalization, Other)
  Sender: FDA-Public Use
  Company Number: US-TEVA-213531USA

PATIENT
  Sex: Female

DRUGS (3)
  1. METRONIDAZOLE [Suspect]
     Indication: INFECTION
     Dosage: INITIALLY IV THEN PO
     Dates: start: 20080401, end: 20080601
  2. AZITHROMYCIN [Suspect]
     Indication: INFECTION
     Dosage: INITIALLY IV THEN PO
     Dates: start: 20080401, end: 20080601
  3. DOXYCYCLINE [Suspect]
     Indication: INFECTION
     Dosage: INITIALLY IV THEN PO
     Dates: start: 20080401, end: 20080601

REACTIONS (1)
  - LONG QT SYNDROME [None]
